FAERS Safety Report 5305103-5 (Version None)
Quarter: 2007Q2

REPORT INFORMATION
  Report Type: 
  Country: None (occurrence: None)
  Receive Date: 20070417
  Receipt Date: 20070410
  Transmission Date: 20071010
  Serious: Yes (Hospitalization)
  Sender: FDA-Public Use
  Company Number: 2006BI009912

PATIENT
  Age: 49 Year
  Sex: Female
  Weight: 106.1417 kg

DRUGS (11)
  1. AVONEX [Suspect]
     Indication: MULTIPLE SCLEROSIS
     Dosage: 30 UG;QW;IM
     Route: 030
     Dates: start: 20040401
  2. LANTUS [Concomitant]
  3. PREMARIN [Concomitant]
  4. PROTONIX [Concomitant]
  5. SPIRONOCLACTONE [Concomitant]
  6. AVANDIA [Concomitant]
  7. CYMBALTA [Concomitant]
  8. NORVASC [Concomitant]
  9. LORATADINE [Concomitant]
  10. IRON [Concomitant]
  11. PREDNISONE TAB [Concomitant]

REACTIONS (12)
  - BLINDNESS UNILATERAL [None]
  - CONDITION AGGRAVATED [None]
  - DEHYDRATION [None]
  - DIABETES MELLITUS [None]
  - INFLUENZA [None]
  - MULTIPLE SCLEROSIS [None]
  - OPTIC NEURITIS [None]
  - OPTIC NEURITIS RETROBULBAR [None]
  - PLEURITIC PAIN [None]
  - PNEUMONIA [None]
  - RENAL CELL CARCINOMA STAGE UNSPECIFIED [None]
  - RENAL TUMOUR EXCISION [None]
